FAERS Safety Report 23210622 (Version 4)
Quarter: 2024Q1

REPORT INFORMATION
  Report Type: Spontaneous
  Country: JP (occurrence: JP)
  Receive Date: 20231121
  Receipt Date: 20240213
  Transmission Date: 20240409
  Serious: Yes (Life-Threatening)
  Sender: FDA-Public Use
  Company Number: JP-VERICEL-JP-VCEL-23-000341

PATIENT
  Age: 21 Year
  Sex: Male
  Weight: 65.7 kg

DRUGS (14)
  1. BROMELAINS [Suspect]
     Active Substance: BROMELAINS
     Indication: Thermal burn
     Dosage: 30 GRAM
     Route: 061
     Dates: start: 20231106, end: 20231106
  2. CALCIUM CHLORIDE\POTASSIUM CHLORIDE\SODIUM ACETATE\SODIUM CHLORIDE [Concomitant]
     Active Substance: CALCIUM CHLORIDE\POTASSIUM CHLORIDE\SODIUM ACETATE\SODIUM CHLORIDE
     Indication: Fluid replacement
     Dosage: 7650 MILLILITER, QD
     Route: 041
     Dates: start: 20231106, end: 20231214
  3. SODIUM CHLORIDE [Concomitant]
     Active Substance: SODIUM CHLORIDE
     Indication: Sedation
     Dosage: 62.8 MILLILITER, QD
     Route: 041
     Dates: start: 20231106, end: 20231211
  4. SODIUM CHLORIDE [Concomitant]
     Active Substance: SODIUM CHLORIDE
     Indication: Analgesic therapy
     Dosage: 20 MILLILITER, Q6H
     Route: 041
     Dates: start: 20231106
  5. MIDAZOLAM [Concomitant]
     Active Substance: MIDAZOLAM
     Indication: Sedation
     Dosage: 7.5 MILLILITER, QD
     Route: 041
     Dates: start: 20231106, end: 20231214
  6. FENTANYL [Concomitant]
     Active Substance: FENTANYL\FENTANYL CITRATE
     Indication: Analgesic therapy
     Dosage: 17.7 MILLILITER, QD
     Route: 041
     Dates: start: 20231106, end: 20231130
  7. PROPOFOL [Concomitant]
     Active Substance: PROPOFOL
     Indication: Sedation
     Dosage: 11.2 MILLILITER, QD
     Route: 041
     Dates: start: 20231106, end: 20231106
  8. NOREPINEPHRINE [Concomitant]
     Active Substance: NOREPINEPHRINE
     Indication: Shock haemorrhagic
     Dosage: 17.4 MILLILITER, QD
     Route: 041
     Dates: start: 20231106, end: 20231117
  9. CALCIUM GLUCONATE [Concomitant]
     Active Substance: CALCIUM GLUCONATE
     Indication: Hyperkalaemia
     Dosage: 10 MILLILITER, QD
     Route: 041
     Dates: start: 20231106, end: 20231106
  10. CEFAZOLIN SODIUM [Concomitant]
     Active Substance: CEFAZOLIN SODIUM
     Indication: Infection
     Dosage: 2 GRAM, Q12H
     Route: 041
     Dates: start: 20231106, end: 20231112
  11. OMEPRAZOLE [Concomitant]
     Active Substance: OMEPRAZOLE
     Indication: Prophylaxis against gastrointestinal ulcer
     Dosage: 20 MILLIGRAM, Q12H
     Route: 041
     Dates: start: 20231106, end: 20231110
  12. KETALAR [Concomitant]
     Active Substance: KETAMINE HYDROCHLORIDE
     Indication: Analgesic therapy
     Dosage: 200 MILLIGRAM, QD
     Route: 041
     Dates: start: 20231106, end: 20231106
  13. ATROPINE SULFATE [Concomitant]
     Active Substance: ATROPINE SULFATE
     Indication: Prophylaxis
     Dosage: 0.5 MILLIGRAM, QD
     Route: 041
     Dates: start: 20231106, end: 20231106
  14. HEPARIN SODIUM [Concomitant]
     Active Substance: HEPARIN SODIUM
     Indication: Flushing
     Dosage: 10 MILLILITER, Q8H
     Route: 041
     Dates: start: 20231106

REACTIONS (2)
  - Shock haemorrhagic [Recovering/Resolving]
  - Product administration error [Unknown]

NARRATIVE: CASE EVENT DATE: 20231106
